FAERS Safety Report 10071884 (Version 3)
Quarter: 2014Q2

REPORT INFORMATION
  Report Type: Spontaneous
  Country: US (occurrence: US)
  Receive Date: 20140411
  Receipt Date: 20140505
  Transmission Date: 20141212
  Serious: Yes (Other)
  Sender: FDA-Public Use
  Company Number: US-JNJFOC-20140403255

PATIENT
  Age: 57 Year
  Sex: Female
  Weight: 64.41 kg

DRUGS (8)
  1. ZYRTEC DISSOLVE TABS 10MG CITRUS [Suspect]
     Route: 048
  2. ZYRTEC DISSOLVE TABS 10MG CITRUS [Suspect]
     Indication: URTICARIA CHRONIC
     Route: 048
     Dates: start: 20140401, end: 20140402
  3. ZANTAC [Concomitant]
     Indication: URTICARIA
     Route: 065
  4. ZYRTEC [Concomitant]
     Indication: URTICARIA CHRONIC
     Dosage: SINCE YEARS
     Route: 065
  5. VALTREX [Concomitant]
     Indication: ORAL HERPES
     Dosage: SINCE 9 YEARS
     Route: 065
  6. SYNTHROID [Concomitant]
     Indication: HYPOTHYROIDISM
     Dosage: SINCE 9YEARS
     Route: 065
  7. CENTRUM MULTIVITAMINS [Concomitant]
     Indication: NUTRITIONAL SUPPLEMENTATION
     Route: 065
  8. SINGULAIR [Concomitant]
     Indication: URTICARIA
     Dosage: DAILY
     Route: 065

REACTIONS (5)
  - Pharyngeal oedema [Recovered/Resolved]
  - Lip swelling [Recovered/Resolved]
  - Dysphagia [Recovered/Resolved]
  - Muscle spasms [Recovered/Resolved]
  - Sensation of foreign body [Unknown]
